FAERS Safety Report 4554461-8 (Version None)
Quarter: 2004Q4

REPORT INFORMATION
  Report Type: 
  Country: None (occurrence: None)
  Receive Date: 20041227
  Receipt Date: 20041001
  Transmission Date: 20050328
  Serious: No
  Sender: FDA-Public Use
  Company Number: 04P-163-0269917-00

PATIENT
  Age: 74 Year
  Sex: Female

DRUGS (7)
  1. HUMIRA [Suspect]
     Indication: RHEUMATOID ARTHRITIS
     Dosage: 40 MG, 1 IN 2 WK, SUBCUTANEOUS
     Route: 058
     Dates: start: 20030401, end: 20040701
  2. METHOTREXATE SODIUM [Concomitant]
  3. LEFLUNOMIDE [Concomitant]
  4. PREDNISONE [Concomitant]
  5. ATORVASTATIN [Concomitant]
  6. RISEDRONATE SODIUM [Concomitant]
  7. LANSOPRAZOLE [Concomitant]

REACTIONS (1)
  - CARCINOMA [None]
